FAERS Safety Report 10802418 (Version 1)
Quarter: 2015Q1

REPORT INFORMATION
  Report Type: Report from Study
  Country: CL (occurrence: CL)
  Receive Date: 20150217
  Receipt Date: 20150217
  Transmission Date: 20150721
  Serious: Yes (Other)
  Sender: FDA-Public Use
  Company Number: CL-EMD SERONO-8011559

PATIENT
  Sex: Male

DRUGS (2)
  1. SAIZEN [Suspect]
     Active Substance: SOMATROPIN
     Indication: CHRONIC KIDNEY DISEASE
     Dosage: INITIAL DOSE (UI/MG): 4.5/1.5
     Dates: start: 201210
  2. SAIZEN [Suspect]
     Active Substance: SOMATROPIN
     Indication: BODY HEIGHT BELOW NORMAL

REACTIONS (4)
  - Rickets [Unknown]
  - Sleep disorder [Unknown]
  - Headache [Unknown]
  - Depression [Unknown]
